FAERS Safety Report 5051669-2 (Version None)
Quarter: 2006Q3

REPORT INFORMATION
  Report Type: 
  Country: None (occurrence: None)
  Receive Date: 20060714
  Receipt Date: 20060505
  Transmission Date: 20061208
  Serious: Yes (Hospitalization, Other)
  Sender: FDA-Public Use
  Company Number: TH-GILEAD-2006-0009561

PATIENT
  Sex: Female
  Weight: 40 kg

DRUGS (7)
  1. EMTRICITABINE/TENOFOVIR DISOPROXIL FUMARATE [Suspect]
     Indication: HIV INFECTION
     Route: 048
     Dates: start: 20060408
  2. EMTRICITABINE/TENOFOVIR DISOPROXIL FUMARATE [Suspect]
     Route: 048
     Dates: start: 20050919, end: 20060407
  3. SAQUINAVIR [Concomitant]
     Indication: HIV INFECTION
     Route: 048
     Dates: start: 20050919
  4. RITONAVIR [Concomitant]
     Indication: HIV INFECTION
     Route: 048
     Dates: start: 20050919
  5. COTRIMOXAZOLE [Concomitant]
     Dosage: 400/80 MG
     Dates: start: 20060124, end: 20060405
  6. COTRIMOXAZOLE [Concomitant]
     Dosage: 800/160 MG
     Dates: start: 20050820, end: 20051221
  7. FLUCONAZOLE [Concomitant]
     Indication: INFECTION PROPHYLAXIS

REACTIONS (19)
  - ANAEMIA [None]
  - ANOREXIA [None]
  - ATRIAL TACHYCARDIA [None]
  - ATRIOVENTRICULAR BLOCK SECOND DEGREE [None]
  - BLOOD CREATININE INCREASED [None]
  - DYSPNOEA EXERTIONAL [None]
  - ELECTROCARDIOGRAM T WAVE INVERSION [None]
  - FATIGUE [None]
  - HAEMATURIA [None]
  - HYPOKALAEMIA [None]
  - HYPONATRAEMIA [None]
  - NEPHROPATHY TOXIC [None]
  - PALLOR [None]
  - PALPITATIONS [None]
  - PLEURAL EFFUSION [None]
  - PROTEINURIA [None]
  - PYREXIA [None]
  - RENAL FAILURE ACUTE [None]
  - RENAL TUBULAR DISORDER [None]
